FAERS Safety Report 9310860 (Version 1)
Quarter: 2013Q2

REPORT INFORMATION
  Report Type: Report from Study
  Country: US (occurrence: US)
  Receive Date: 20130528
  Receipt Date: 20130528
  Transmission Date: 20140414
  Serious: Yes (Other)
  Sender: FDA-Public Use
  Company Number: US-BAYER-2013-008504

PATIENT
  Age: 61 Year
  Sex: Female
  Weight: 73.83 kg

DRUGS (3)
  1. BETASERON [Suspect]
     Indication: MULTIPLE SCLEROSIS
     Dosage: 6 MIU, QOD
     Route: 058
     Dates: start: 20040202
  2. AMBIEN [Concomitant]
     Indication: INSOMNIA
     Dosage: 10 MG, PRN
     Dates: start: 200503
  3. VITAMIN D [Concomitant]
     Indication: VITAMIN D DECREASED
     Dosage: 2000 MG, QD
     Dates: start: 201103

REACTIONS (6)
  - Pneumonia [Recovered/Resolved]
  - Malaise [Recovered/Resolved]
  - Nasopharyngitis [None]
  - Cough [None]
  - Dyspnoea [None]
  - Type V hyperlipidaemia [None]
